FAERS Safety Report 7943225-0 (Version None)
Quarter: 2011Q4

REPORT INFORMATION
  Report Type: 
  Country: None (occurrence: None)
  Receive Date: 20111128
  Receipt Date: 20111122
  Transmission Date: 20120403
  Serious: Yes (Death, Other)
  Sender: FDA-Public Use
  Company Number: PHHY2011US102803

PATIENT
  Age: 65 Year
  Sex: Female

DRUGS (1)
  1. TERBINAFINE HCL [Suspect]
     Indication: FUNGAL INFECTION

REACTIONS (7)
  - MYCOTIC ANEURYSM [None]
  - CHEST PAIN [None]
  - DYSPNOEA [None]
  - PERICARDIAL EFFUSION [None]
  - AORTIC ANEURYSM RUPTURE [None]
  - AORTIC ANEURYSM [None]
  - THROMBOCYTOPENIA [None]
